FAERS Safety Report 12865545 (Version 1)
Quarter: 2016Q4

REPORT INFORMATION
  Report Type: Spontaneous
  Country: US (occurrence: US)
  Receive Date: 20161020
  Receipt Date: 20161020
  Transmission Date: 20170207
  Serious: No
  Sender: FDA-Public Use
  Company Number: US-SHIRE-US201614893

PATIENT
  Age: 73 Year
  Sex: Female
  Weight: 63.49 kg

DRUGS (2)
  1. XIIDRA [Suspect]
     Active Substance: LIFITEGRAST
     Indication: DRY EYE
     Dosage: 1 GTT (BOTH EYES), 2X/DAY:BID
     Route: 047
     Dates: start: 20160925, end: 20161013
  2. XIIDRA [Suspect]
     Active Substance: LIFITEGRAST
     Indication: CORNEAL LESION
     Dosage: 1 GTT (RIGHT EYE), 1X/DAY:QD
     Route: 047
     Dates: start: 20161014

REACTIONS (5)
  - Instillation site pain [Not Recovered/Not Resolved]
  - Condition aggravated [Not Recovered/Not Resolved]
  - Inappropriate schedule of drug administration [Not Recovered/Not Resolved]
  - Instillation site irritation [Not Recovered/Not Resolved]
  - Anxiety [Not Recovered/Not Resolved]

NARRATIVE: CASE EVENT DATE: 2016
